FAERS Safety Report 4540508-1 (Version None)
Quarter: 2005Q1

REPORT INFORMATION
  Report Type: 
  Country: None (occurrence: None)
  Receive Date: 20041223
  Receipt Date: 20041026
  Transmission Date: 20050727
  Serious: No
  Sender: FDA-Public Use
  Company Number: US-JNJFOC-20041008444

PATIENT
  Age: 40 Year
  Sex: Female
  Weight: 89.8122 kg

DRUGS (2)
  1. ORTHO EVRA [Suspect]
     Indication: CONTRACEPTION
     Dosage: 1 DOSE(S), 3 IN 4 WEEK, TRANSDERMAL
     Route: 062
     Dates: start: 20030101, end: 20040901
  2. ZYRTEC [Concomitant]

REACTIONS (4)
  - APPLICATION SITE DISCOLOURATION [None]
  - APPLICATION SITE PRURITUS [None]
  - NAUSEA [None]
  - UPPER RESPIRATORY TRACT INFECTION [None]
